FAERS Safety Report 6204566-0 (Version None)
Quarter: 2009Q2

REPORT INFORMATION
  Report Type: 
  Country: None (occurrence: None)
  Receive Date: 20090527
  Receipt Date: 20090515
  Transmission Date: 20091009
  Serious: Yes (Other)
  Sender: FDA-Public Use
  Company Number: US-PFIZER INC-2009207071

PATIENT
  Sex: Female
  Weight: 90.718 kg

DRUGS (2)
  1. CHANTIX [Suspect]
     Indication: SMOKING CESSATION THERAPY
     Dosage: 1 MG, 2X/DAY
     Dates: start: 20090401, end: 20090101
  2. ANTIBIOTICS [Concomitant]
     Dosage: UNK

REACTIONS (1)
  - ANGER [None]
